FAERS Safety Report 4879825-4 (Version None)
Quarter: 2006Q1

REPORT INFORMATION
  Report Type: 
  Country: None (occurrence: None)
  Receive Date: 20060113
  Receipt Date: 20051230
  Transmission Date: 20060701
  Serious: Yes (Other)
  Sender: FDA-Public Use
  Company Number: US-JNJFOC-20051000954

PATIENT
  Sex: Female
  Weight: 83.92 kg

DRUGS (5)
  1. IBUPROFEN [Suspect]
     Dosage: ^ON A REGULAR BASIS^
  2. IBUPROFEN [Suspect]
     Indication: OSTEOARTHRITIS
  3. DILANTIN [Suspect]
  4. DILANTIN [Suspect]
  5. UNKNOWN MEDICATION [Suspect]

REACTIONS (9)
  - CHOKING [None]
  - DRUG LEVEL DECREASED [None]
  - EMPHYSEMA [None]
  - GRAND MAL CONVULSION [None]
  - HEPATITIS B [None]
  - KIDNEY INFECTION [None]
  - NEPHROLITHIASIS [None]
  - OSTEOARTHRITIS [None]
  - PETIT MAL EPILEPSY [None]
